FAERS Safety Report 8019451-1 (Version None)
Quarter: 2012Q1

REPORT INFORMATION
  Report Type: 
  Country: None (occurrence: None)
  Receive Date: 20120103
  Receipt Date: 20111228
  Transmission Date: 20120608
  Serious: Yes (Hospitalization)
  Sender: FDA-Public Use
  Company Number: PHHY2011NL113632

PATIENT
  Sex: Male

DRUGS (6)
  1. PANTOPRAZOLE SODIUM [Concomitant]
  2. TURBO INHALER [Concomitant]
  3. ZOMETA [Suspect]
     Dosage: 4MG/5ML ONCE PER 42 DAYS
     Route: 042
     Dates: start: 20111125
  4. DIOVAN HCT [Concomitant]
  5. CALC CHEW [Concomitant]
  6. ZOMETA [Suspect]
     Indication: METASTASES TO PROSTATE
     Dosage: 4MG/5ML ONCE PER 42 DAYS
     Route: 042
     Dates: start: 20111012

REACTIONS (2)
  - PNEUMONIA [None]
  - BLOOD CALCIUM DECREASED [None]
